FAERS Safety Report 9999001 (Version 1)
Quarter: 2014Q1

REPORT INFORMATION
  Report Type: Spontaneous
  Country: US (occurrence: None)
  Receive Date: 20140311
  Receipt Date: 20140311
  Transmission Date: 20141002
  Serious: Yes (Disabling)
  Sender: FDA-Public Use
  Company Number: None

PATIENT
  Age: 41 Year
  Sex: Female
  Weight: 88.45 kg

DRUGS (1)
  1. GADOLINIUM [Suspect]
     Indication: SCAN WITH CONTRAST
     Route: 042
     Dates: start: 20131115

REACTIONS (7)
  - Contrast media reaction [None]
  - Urticaria [None]
  - Rash [None]
  - Immune system disorder [None]
  - Arthropathy [None]
  - Skin disorder [None]
  - Muscle disorder [None]
